FAERS Safety Report 18085097 (Version 3)
Quarter: 2020Q4

REPORT INFORMATION
  Report Type: Report from Study
  Country: BR (occurrence: BR)
  Receive Date: 20200729
  Receipt Date: 20201121
  Transmission Date: 20210113
  Serious: Yes (Other)
  Sender: FDA-Public Use
  Company Number: NVSC2020BR162628

PATIENT
  Age: 64 Year
  Sex: Female
  Weight: 55 kg

DRUGS (4)
  1. METHOTREXATE. [Concomitant]
     Active Substance: METHOTREXATE
     Indication: PRODUCT USED FOR UNKNOWN INDICATION
     Dosage: UNK
     Route: 048
  2. ETANERCEPT [Concomitant]
     Active Substance: ETANERCEPT
     Indication: PSORIATIC ARTHROPATHY
     Dosage: 50 MG, QW(50 MG AMPOULE), STARTED 10 YEARS AGO)
     Route: 058
     Dates: end: 202001
  3. COSENTYX [Suspect]
     Active Substance: SECUKINUMAB
     Indication: PSORIASIS
     Dosage: 300 MG, QMO
     Route: 058
     Dates: start: 20200211
  4. COSENTYX [Suspect]
     Active Substance: SECUKINUMAB
     Indication: PSORIATIC ARTHROPATHY

REACTIONS (25)
  - Wound [Recovered/Resolved]
  - Scab [Recovered/Resolved]
  - Skin exfoliation [Not Recovered/Not Resolved]
  - Insomnia [Unknown]
  - Hypokinesia [Recovering/Resolving]
  - Head injury [Recovering/Resolving]
  - Back pain [Recovering/Resolving]
  - Anxiety [Unknown]
  - Psoriasis [Recovering/Resolving]
  - Depression [Recovering/Resolving]
  - Contusion [Unknown]
  - Rash [Recovering/Resolving]
  - Sudden visual loss [Not Recovered/Not Resolved]
  - Skin wound [Recovering/Resolving]
  - Osteoarthritis [Recovering/Resolving]
  - Enthesopathy [Unknown]
  - Inappropriate schedule of product administration [Recovered/Resolved]
  - Pain [Not Recovered/Not Resolved]
  - Pruritus [Not Recovered/Not Resolved]
  - Swelling [Recovering/Resolving]
  - Furuncle [Recovering/Resolving]
  - Mass [Recovering/Resolving]
  - Burning sensation [Recovering/Resolving]
  - Neck injury [Not Recovered/Not Resolved]
  - Agitation [Unknown]

NARRATIVE: CASE EVENT DATE: 20200211
